FAERS Safety Report 7404051-4 (Version None)
Quarter: 2011Q2

REPORT INFORMATION
  Report Type: 
  Country: None (occurrence: None)
  Receive Date: 20110408
  Receipt Date: 20110325
  Transmission Date: 20111010
  Serious: Yes (Other)
  Sender: FDA-Public Use
  Company Number: US-BAYER-201030110NA

PATIENT
  Age: 39 Year
  Sex: Female
  Weight: 126.98 kg

DRUGS (18)
  1. ASCORBIC ACID [Concomitant]
     Dosage: UNK
     Dates: start: 20010101
  2. PROZAC [Concomitant]
     Dosage: UNK
     Dates: start: 20090101
  3. YASMIN [Suspect]
     Indication: PRODUCT USED FOR UNKNOWN INDICATION
     Route: 048
     Dates: start: 20030801
  4. SEREVENT [Concomitant]
     Dosage: UNK
     Dates: start: 20040101
  5. ZITHROMAX [Concomitant]
     Dosage: UNK
     Dates: start: 20050101
  6. MOTRIN [Concomitant]
     Dosage: 400 MG, PRN
     Dates: start: 20060101
  7. HYDROCHLOROTHIAZIDE [Concomitant]
     Dosage: UNK
     Dates: start: 20070101
  8. YAZ [Suspect]
     Indication: PRODUCT USED FOR UNKNOWN INDICATION
     Route: 048
     Dates: start: 20030801
  9. HYDROCHLOROTHIAZIDE [Concomitant]
     Dosage: UNK
     Dates: start: 20090101
  10. VENTOLIN [Concomitant]
     Dosage: UNK
     Dates: start: 20040101
  11. PRILOSEC [Concomitant]
     Dosage: UNK
     Dates: start: 20060101
  12. FLOVENT [Concomitant]
     Dosage: UNK
     Dates: start: 20040101
  13. DIVAN [Concomitant]
     Dosage: UNK
     Dates: start: 20060101
  14. ACE INHIBITOR NOS [Concomitant]
  15. OCELLA [Suspect]
     Indication: PRODUCT USED FOR UNKNOWN INDICATION
     Route: 048
     Dates: start: 20030801
  16. HYDROCHLOROTHIAZIDE [Concomitant]
     Dosage: UNK
     Dates: start: 20080101
  17. TOPAMAX [Concomitant]
     Dosage: UNK
     Dates: start: 20020101
  18. ALBUTEROL [Concomitant]
     Dosage: UNK
     Route: 049
     Dates: start: 20040101

REACTIONS (4)
  - DEPRESSION [None]
  - CHOLECYSTITIS CHRONIC [None]
  - GALLBLADDER DISORDER [None]
  - GALLBLADDER CHOLESTEROLOSIS [None]
